FAERS Safety Report 17186877 (Version 6)
Quarter: 2020Q1

REPORT INFORMATION
  Report Type: Spontaneous
  Country: US (occurrence: US)
  Receive Date: 20191220
  Receipt Date: 20200330
  Transmission Date: 20200409
  Serious: Yes (Death, Hospitalization, Other)
  Sender: FDA-Public Use
  Company Number: US-UNITED THERAPEUTICS-UNT-2019-020914

PATIENT
  Age: 76 Year
  Sex: Female
  Weight: 69.39 kg

DRUGS (7)
  1. ORENITRAM [Suspect]
     Active Substance: TREPROSTINIL
     Indication: PULMONARY ARTERIAL HYPERTENSION
     Dosage: UNK
     Route: 048
  2. ADCIRCA [Concomitant]
     Active Substance: TADALAFIL
     Indication: PULMONARY ARTERIAL HYPERTENSION
     Dosage: UNK
     Route: 065
  3. ORENITRAM [Suspect]
     Active Substance: TREPROSTINIL
     Dosage: 1 MG, Q8H
     Route: 048
  4. WARFARIN [Suspect]
     Active Substance: WARFARIN
     Indication: PRODUCT USED FOR UNKNOWN INDICATION
     Dosage: UNK
     Route: 065
  5. ORENITRAM [Suspect]
     Active Substance: TREPROSTINIL
     Indication: PULMONARY ARTERIAL HYPERTENSION
     Dosage: UNK
     Route: 048
  6. ORENITRAM [Suspect]
     Active Substance: TREPROSTINIL
     Indication: PULMONARY ARTERIAL HYPERTENSION
     Dosage: UNK
     Route: 048
  7. ORENITRAM [Suspect]
     Active Substance: TREPROSTINIL
     Indication: PULMONARY ARTERIAL HYPERTENSION
     Dosage: 0.5 MG, Q8H
     Route: 048
     Dates: start: 20191003

REACTIONS (18)
  - Hyponatraemia [Unknown]
  - Intestinal haemorrhage [Unknown]
  - Product dose omission [Unknown]
  - Mental status changes [Unknown]
  - Pollakiuria [Unknown]
  - Depressed level of consciousness [Unknown]
  - Decreased appetite [Unknown]
  - Oedema [Unknown]
  - Diarrhoea [Unknown]
  - Confusional state [Unknown]
  - Treatment noncompliance [Unknown]
  - Hypersomnia [Unknown]
  - Death [Fatal]
  - Diarrhoea haemorrhagic [Unknown]
  - Asthenia [Unknown]
  - Renal disorder [Unknown]
  - Gait inability [Unknown]
  - Fatigue [Unknown]

NARRATIVE: CASE EVENT DATE: 2019
